FAERS Safety Report 5545205-1 (Version None)
Quarter: 2007Q4

REPORT INFORMATION
  Report Type: 
  Country: None (occurrence: None)
  Receive Date: 20071123
  Receipt Date: 20070417
  Transmission Date: 20080405
  Serious: Yes (Hospitalization, Other)
  Sender: FDA-Public Use
  Company Number: US-JNJFOC-20070300418

PATIENT
  Age: 78 Year
  Sex: Female
  Weight: 69.4003 kg

DRUGS (2)
  1. LEVAQUIN [Suspect]
     Indication: PNEUMONIA
     Dosage: 750 MG,
  2. UNKNOWN MEDICATION (ALL OTHER THERAPEUTIC PRODUCTS) UNSPECIFIED [Concomitant]

REACTIONS (1)
  - GRAND MAL CONVULSION [None]
